FAERS Safety Report 23350470 (Version 2)
Quarter: 2024Q1

REPORT INFORMATION
  Report Type: Other
  Country: US (occurrence: None)
  Receive Date: 20231229
  Receipt Date: 20240207
  Transmission Date: 20240410
  Serious: Yes (Hospitalization)
  Sender: FDA-Public Use
  Company Number: US-ROCHE-3478928

PATIENT
  Age: 60 Year
  Sex: Male

DRUGS (16)
  1. OCREVUS [Suspect]
     Active Substance: OCRELIZUMAB
     Indication: Primary progressive multiple sclerosis
     Route: 042
     Dates: start: 20180418, end: 20230524
  2. OMEPRAZOLE [Concomitant]
     Active Substance: OMEPRAZOLE
  3. OXYCODONE [Concomitant]
     Active Substance: OXYCODONE\OXYCODONE HYDROCHLORIDE
  4. PREGABALIN [Concomitant]
     Active Substance: PREGABALIN
  5. TIZANIDINE [Concomitant]
     Active Substance: TIZANIDINE
  6. TYLENOL [Concomitant]
     Active Substance: ACETAMINOPHEN
  7. VITAMIN D3 [Concomitant]
     Active Substance: CHOLECALCIFEROL
  8. XYLOCAINE [Concomitant]
     Active Substance: LIDOCAINE HYDROCHLORIDE
  9. ALBUTEROL SULFATE [Concomitant]
     Active Substance: ALBUTEROL SULFATE
  10. ALEVE [Concomitant]
     Active Substance: NAPROXEN SODIUM
  11. BACLOFEN [Concomitant]
     Active Substance: BACLOFEN
  12. CITALOPRAM [Concomitant]
     Active Substance: CITALOPRAM HYDROBROMIDE
  13. DONEPEZIL [Concomitant]
     Active Substance: DONEPEZIL
  14. DOXYCYCLINE [Concomitant]
     Active Substance: DOXYCYCLINE
  15. LIDOCAINE [Concomitant]
     Active Substance: LIDOCAINE
  16. MELATONIN [Concomitant]
     Active Substance: MELATONIN

REACTIONS (9)
  - Pneumonia [Unknown]
  - Pneumothorax [Unknown]
  - Sepsis [Unknown]
  - COVID-19 [Unknown]
  - Infusion related reaction [Unknown]
  - Depression [Unknown]
  - Insomnia [Unknown]
  - Dysphonia [Unknown]
  - Occipital neuralgia [Unknown]

NARRATIVE: CASE EVENT DATE: 20230901
